FAERS Safety Report 12099142 (Version 2)
Quarter: 2016Q1

REPORT INFORMATION
  Report Type: Spontaneous
  Country: US (occurrence: US)
  Receive Date: 20160222
  Receipt Date: 20160311
  Transmission Date: 20160526
  Serious: No
  Sender: FDA-Public Use
  Company Number: US-LEO PHARMA-240232

PATIENT
  Sex: Female

DRUGS (1)
  1. PICATO [Suspect]
     Active Substance: INGENOL MEBUTATE
     Indication: PRECANCEROUS SKIN LESION
     Dates: start: 20160215, end: 20160216

REACTIONS (8)
  - Application site discharge [Recovered/Resolved]
  - Application site vesicles [Recovered/Resolved]
  - Application site pain [Recovered/Resolved]
  - Drug administration error [Unknown]
  - Application site scab [Recovered/Resolved]
  - Incorrect dose administered [Unknown]
  - Application site pain [Recovered/Resolved]
  - Application site erythema [Recovered/Resolved]

NARRATIVE: CASE EVENT DATE: 20160215
